FAERS Safety Report 7929379-0 (Version None)
Quarter: 2011Q4

REPORT INFORMATION
  Report Type: 
  Country: None (occurrence: None)
  Receive Date: 20111121
  Receipt Date: 20111115
  Transmission Date: 20120403
  Serious: No
  Sender: FDA-Public Use
  Company Number: US-BIOGENIDEC-2011BI043702

PATIENT
  Sex: Female

DRUGS (2)
  1. TYSABRI [Suspect]
     Indication: MULTIPLE SCLEROSIS
     Route: 042
     Dates: start: 20111109
  2. TYSABRI [Suspect]
     Route: 042
     Dates: start: 20080206, end: 20081030

REACTIONS (24)
  - ASTHENIA [None]
  - DECREASED APPETITE [None]
  - EMOTIONAL DISORDER [None]
  - DEPRESSED MOOD [None]
  - CACHEXIA [None]
  - VOMITING [None]
  - MULTIPLE SCLEROSIS RELAPSE [None]
  - MUSCLE ATROPHY [None]
  - PAIN [None]
  - ADVERSE DRUG REACTION [None]
  - ENDOMETRITIS [None]
  - INSOMNIA [None]
  - NAUSEA [None]
  - HYPOTONIA [None]
  - GENERAL PHYSICAL HEALTH DETERIORATION [None]
  - MEMORY IMPAIRMENT [None]
  - MULTIPLE SCLEROSIS [None]
  - DRUG INEFFECTIVE [None]
  - PREMATURE MENOPAUSE [None]
  - GENERAL SYMPTOM [None]
  - MENTAL IMPAIRMENT [None]
  - FATIGUE [None]
  - APHAGIA [None]
  - MIGRAINE [None]
